FAERS Safety Report 4525991-X (Version None)
Quarter: 2004Q4

REPORT INFORMATION
  Report Type: 
  Country: None (occurrence: None)
  Receive Date: 20041214
  Receipt Date: 20041202
  Transmission Date: 20050328
  Serious: Yes (Other)
  Sender: FDA-Public Use
  Company Number: US-JNJFOC-20040810109

PATIENT
  Sex: Female
  Weight: 124.74 kg

DRUGS (20)
  1. REMICADE [Suspect]
     Route: 042
  2. CLARITIN [Concomitant]
  3. NASONEX [Concomitant]
  4. CELEBREX [Concomitant]
  5. ACIFEX [Concomitant]
  6. ACIFEX [Concomitant]
  7. VICODIN [Concomitant]
  8. VICODIN [Concomitant]
  9. ASPIRIN [Concomitant]
  10. FIBERCON [Concomitant]
  11. TUMS [Concomitant]
  12. VITAMIN E [Concomitant]
  13. MULTI-VITAMIN [Concomitant]
  14. MULTI-VITAMIN [Concomitant]
  15. MULTI-VITAMIN [Concomitant]
  16. MULTI-VITAMIN [Concomitant]
  17. MULTI-VITAMIN [Concomitant]
  18. MULTI-VITAMIN [Concomitant]
  19. MULTI-VITAMIN [Concomitant]
  20. MULTI-VITAMIN [Concomitant]

REACTIONS (8)
  - CARPAL TUNNEL SYNDROME [None]
  - ELECTROMYOGRAM ABNORMAL [None]
  - HYPOAESTHESIA [None]
  - HYPOREFLEXIA [None]
  - MOVEMENT DISORDER [None]
  - PAIN [None]
  - PARAESTHESIA [None]
  - TREMOR [None]
